FAERS Safety Report 8443911-2 (Version None)
Quarter: 2012Q2

REPORT INFORMATION
  Report Type: 
  Country: None (occurrence: None)
  Receive Date: 20120323
  Receipt Date: 20110531
  Transmission Date: 20120825
  Serious: Yes (Other)
  Sender: FDA-Public Use
  Company Number: 163-21880-11060143

PATIENT
  Age: 64 Year
  Sex: Female

DRUGS (11)
  1. CYCLOBENZAPRINE [Concomitant]
  2. CALAMINE (CALAMINE) (LOTION (NOT FOR OPHTHALMIC USE)) [Concomitant]
  3. PREDNISONE TAB [Concomitant]
  4. AMLODIPINE [Concomitant]
  5. LENALIDOMIDE [Suspect]
     Indication: MULTIPLE MYELOMA
     Dosage: 15 MG, DAILY, PO, 25 MG, DAILY X21D/28D, PO, 10 MG, DAILY X21D/28D, PO
     Route: 048
     Dates: start: 20091001, end: 20100801
  6. LENALIDOMIDE [Suspect]
     Indication: MULTIPLE MYELOMA
     Dosage: 15 MG, DAILY, PO, 25 MG, DAILY X21D/28D, PO, 10 MG, DAILY X21D/28D, PO
     Route: 048
     Dates: start: 20100801
  7. LENALIDOMIDE [Suspect]
     Indication: MULTIPLE MYELOMA
     Dosage: 15 MG, DAILY, PO, 25 MG, DAILY X21D/28D, PO, 10 MG, DAILY X21D/28D, PO
     Route: 048
     Dates: start: 20110101
  8. HYDROCODONE BITARTRATE AND ACETAMINOPHEN [Concomitant]
  9. CHLORPHENIRAMINE-APAP [Concomitant]
  10. LOSARTAN POTASSIUM [Concomitant]
  11. BENADRYL [Concomitant]

REACTIONS (1)
  - RASH PRURITIC [None]
